FAERS Safety Report 13678291 (Version 1)
Quarter: 2017Q2

REPORT INFORMATION
  Report Type: Spontaneous
  Country: US (occurrence: US)
  Receive Date: 20170621
  Receipt Date: 20170621
  Transmission Date: 20170830
  Serious: Yes (Hospitalization, Disabling, Other)
  Sender: FDA-Public Use
  Company Number: None

PATIENT
  Age: 61 Year
  Sex: Male
  Weight: 84.6 kg

DRUGS (7)
  1. LORAZEPAM. [Suspect]
     Active Substance: LORAZEPAM
     Indication: BANKRUPTCY
     Dosage: ?          QUANTITY:2 TABLET(S);?EVERY 6 HOURS ORAL
     Route: 048
     Dates: start: 20031231, end: 20100428
  2. FUROSEMIDE. [Concomitant]
     Active Substance: FUROSEMIDE
  3. LORAZEPAM. [Suspect]
     Active Substance: LORAZEPAM
     Indication: STRESS AT WORK
     Dosage: ?          QUANTITY:2 TABLET(S);?EVERY 6 HOURS ORAL
     Route: 048
     Dates: start: 20031231, end: 20100428
  4. LISONOPRIL [Concomitant]
  5. TRAZODONE [Concomitant]
     Active Substance: TRAZODONE HYDROCHLORIDE
  6. PALEO DIET [Concomitant]
  7. IBUPROFEN. [Concomitant]
     Active Substance: IBUPROFEN

REACTIONS (18)
  - Anxiety [None]
  - Laceration [None]
  - Fall [None]
  - Malaise [None]
  - Vertigo [None]
  - Agoraphobia [None]
  - Psychotic disorder [None]
  - Insomnia [None]
  - Weight decreased [None]
  - Anger [None]
  - Sleep terror [None]
  - Derealisation [None]
  - Dysphonia [None]
  - Agitation [None]
  - Tremor [None]
  - Tachyphrenia [None]
  - Depersonalisation/derealisation disorder [None]
  - Fracture [None]

NARRATIVE: CASE EVENT DATE: 20071224
